FAERS Safety Report 12730444 (Version 2)
Quarter: 2016Q4

REPORT INFORMATION
  Report Type: Spontaneous
  Country: US (occurrence: US)
  Receive Date: 20160909
  Receipt Date: 20161118
  Transmission Date: 20170207
  Serious: Yes (Other)
  Sender: FDA-Public Use
  Company Number: US-TEVA-690853USA

PATIENT
  Age: 45 Year
  Sex: Female

DRUGS (1)
  1. COPAXONE [Suspect]
     Active Substance: GLATIRAMER ACETATE
     Dosage: UNKNOWN FORM STRENGTH
     Route: 058
     Dates: start: 2005, end: 2013

REACTIONS (3)
  - Muscle atrophy [Unknown]
  - Muscle necrosis [Recovered/Resolved with Sequelae]
  - Necrosis [Unknown]

NARRATIVE: CASE EVENT DATE: 2012
